FAERS Safety Report 16723259 (Version 4)
Quarter: 2019Q4

REPORT INFORMATION
  Report Type: Spontaneous
  Country: US (occurrence: US)
  Receive Date: 20190821
  Receipt Date: 20191205
  Transmission Date: 20200122
  Serious: Yes (Hospitalization)
  Sender: FDA-Public Use
  Company Number: US-BIOGEN-2019BI00776698

PATIENT
  Age: 32 Year
  Sex: Female

DRUGS (3)
  1. TYSABRI [Suspect]
     Active Substance: NATALIZUMAB
     Indication: MULTIPLE SCLEROSIS
     Route: 065
     Dates: start: 20120531, end: 20151116
  2. TYSABRI [Suspect]
     Active Substance: NATALIZUMAB
     Route: 065
     Dates: start: 20190812
  3. TYSABRI [Suspect]
     Active Substance: NATALIZUMAB
     Route: 065
     Dates: start: 20170120, end: 20180628

REACTIONS (7)
  - Obstructive pancreatitis [Recovered/Resolved with Sequelae]
  - Procedural pain [Not Recovered/Not Resolved]
  - Pruritus [Unknown]
  - Procedural nausea [Not Recovered/Not Resolved]
  - Cholelithiasis [Recovered/Resolved]
  - Heart rate abnormal [Unknown]
  - Feeling cold [Unknown]

NARRATIVE: CASE EVENT DATE: 20190814
